FAERS Safety Report 6385545-X (Version None)
Quarter: 2009Q4

REPORT INFORMATION
  Report Type: 
  Country: None (occurrence: None)
  Receive Date: 20091002
  Receipt Date: 20081217
  Transmission Date: 20100525
  Serious: No
  Sender: FDA-Public Use
  Company Number: US-ASTRAZENECA-2008UW20277

PATIENT
  Sex: Female

DRUGS (1)
  1. ARIMIDEX [Suspect]
     Dosage: 1/2 TABLE PER DAY
     Route: 048

REACTIONS (2)
  - HOT FLUSH [None]
  - TREATMENT NONCOMPLIANCE [None]
